FAERS Safety Report 6980480-8 (Version None)
Quarter: 2010Q3

REPORT INFORMATION
  Report Type: 
  Country: None (occurrence: None)
  Receive Date: 20100914
  Receipt Date: 20100903
  Transmission Date: 20110219
  Serious: Yes (Life-Threatening, Hospitalization, Other)
  Sender: FDA-Public Use
  Company Number: US-BAXTER-2010BH022842

PATIENT
  Age: 60 Year
  Sex: Female

DRUGS (12)
  1. GAMMAGARD LIQUID [Suspect]
     Indication: IMMUNODEFICIENCY COMMON VARIABLE
     Route: 042
     Dates: start: 20100812, end: 20100812
  2. GAMMAGARD LIQUID [Suspect]
     Indication: PRIMARY IMMUNODEFICIENCY SYNDROME
     Route: 042
     Dates: start: 20100812, end: 20100812
  3. GAMMAGARD LIQUID [Suspect]
     Route: 042
     Dates: start: 20100813, end: 20100813
  4. GAMMAGARD LIQUID [Suspect]
     Route: 042
     Dates: start: 20100813, end: 20100813
  5. PROZAC [Concomitant]
     Indication: DEPRESSION
     Route: 048
  6. XANAX [Concomitant]
     Indication: DEPRESSION
     Route: 048
  7. REMERON [Concomitant]
     Indication: DEPRESSION
     Route: 048
  8. HYDROCHLOROTHIAZIDE [Concomitant]
     Indication: HYPERTENSION
     Route: 048
  9. ALDACTONE [Concomitant]
     Indication: HYPERTENSION
     Route: 048
  10. SIMVASTATIN [Concomitant]
     Indication: HYPERCHOLESTEROLAEMIA
     Route: 048
  11. DIPHENHYDRAMINE HCL [Concomitant]
     Indication: PREMEDICATION
     Route: 048
  12. TYLENOL [Concomitant]
     Indication: PREMEDICATION
     Route: 048

REACTIONS (2)
  - DYSPNOEA [None]
  - PULMONARY EMBOLISM [None]
